FAERS Safety Report 7399305-4 (Version None)
Quarter: 2011Q1

REPORT INFORMATION
  Report Type: 
  Country: None (occurrence: None)
  Receive Date: 20110328
  Receipt Date: 20110314
  Transmission Date: 20110831
  Serious: Yes (Death, Life-Threatening)
  Sender: FDA-Public Use
  Company Number: VISP-NO-1103S-0086

PATIENT
  Age: 71 Year
  Sex: Male
  Weight: 85 kg

DRUGS (5)
  1. NAVIXEN PLUS [Concomitant]
  2. AMLODIPINE [Concomitant]
  3. VISIPAQUE [Suspect]
     Indication: METASTASIS
     Dosage: 100 ML, SINGLE DOSE, IV
     Route: 042
     Dates: start: 20110301, end: 20110301
  4. HYDRICHLOROTHIAZIDE [Concomitant]
  5. IDAPTAN [Concomitant]

REACTIONS (3)
  - CARDIO-RESPIRATORY ARREST [None]
  - CARDIAC FAILURE [None]
  - FLUID OVERLOAD [None]
